FAERS Safety Report 21148615 (Version 1)
Quarter: 2022Q3

REPORT INFORMATION
  Report Type: Spontaneous
  Country: US (occurrence: US)
  Receive Date: 20220729
  Receipt Date: 20220729
  Transmission Date: 20221027
  Serious: No
  Sender: FDA-Public Use
  Company Number: US-BIOGEN-2022BI01143205

PATIENT
  Sex: Male

DRUGS (1)
  1. TECFIDERA [Suspect]
     Active Substance: DIMETHYL FUMARATE
     Indication: Multiple sclerosis
     Dosage: TAKE 1 CAPSULE BY ORAL ROUTE 2 TIMES EVERY DAY
     Route: 050

REACTIONS (4)
  - Hemihypoaesthesia [Unknown]
  - Pain [Unknown]
  - Swollen tongue [Unknown]
  - Malaise [Unknown]
